FAERS Safety Report 25273439 (Version 6)
Quarter: 2025Q2

REPORT INFORMATION
  Report Type: Spontaneous
  Country: US (occurrence: US)
  Receive Date: 20250506
  Receipt Date: 20250617
  Transmission Date: 20250716
  Serious: No
  Sender: KARYOPHARM THERAPEUTICS
  Company Number: US-KARYOPHARM-2025KPT100224

PATIENT

DRUGS (16)
  1. SELINEXOR [Suspect]
     Active Substance: SELINEXOR
     Indication: Plasma cell myeloma
     Route: 048
     Dates: start: 20250501
  2. SELINEXOR [Suspect]
     Active Substance: SELINEXOR
     Route: 048
     Dates: start: 2025
  3. POMALYST [Concomitant]
     Active Substance: POMALIDOMIDE
  4. MORPHINE SULFATE [Concomitant]
     Active Substance: MORPHINE SULFATE
  5. OXYCODONE [Concomitant]
     Active Substance: OXYCODONE
  6. CLONAZEPAM [Concomitant]
     Active Substance: CLONAZEPAM
  7. ACYCLOVIR [Concomitant]
     Active Substance: ACYCLOVIR
  8. ELIQUIS [Concomitant]
     Active Substance: APIXABAN
  9. ARIPIPRAZOLE [Concomitant]
     Active Substance: ARIPIPRAZOLE
  10. DULOXETINE [Concomitant]
     Active Substance: DULOXETINE
  11. BUPROPION [Concomitant]
     Active Substance: BUPROPION
  12. OMEPRAZOLE [Concomitant]
     Active Substance: OMEPRAZOLE
  13. OLANZAPINE [Concomitant]
     Active Substance: OLANZAPINE
  14. DEXAMETHASONE [Concomitant]
     Active Substance: DEXAMETHASONE
  15. NITROFURANTOIN [Concomitant]
     Active Substance: NITROFURANTOIN
  16. ONDANSETRON [Concomitant]
     Active Substance: ONDANSETRON

REACTIONS (6)
  - Alopecia [Unknown]
  - Onychomadesis [Unknown]
  - White blood cell count decreased [Unknown]
  - Diarrhoea [Recovered/Resolved]
  - Fatigue [Not Recovered/Not Resolved]
  - Urinary tract infection [Unknown]

NARRATIVE: CASE EVENT DATE: 20250101
